FAERS Safety Report 25362039 (Version 1)
Quarter: 2025Q2

REPORT INFORMATION
  Report Type: Spontaneous
  Country: SY (occurrence: SY)
  Receive Date: 20250527
  Receipt Date: 20250527
  Transmission Date: 20250717
  Serious: Yes (Other)
  Sender: RANBAXY
  Company Number: SY-SUN PHARMACEUTICAL INDUSTRIES LTD-2025R1-508300

PATIENT
  Age: 40 Year
  Sex: Male
  Weight: 92 kg

DRUGS (1)
  1. FLUTICASONE [Suspect]
     Active Substance: FLUTICASONE
     Indication: Rhinitis allergic
     Dosage: 220 MICROGRAM, DAILY
     Route: 065

REACTIONS (1)
  - Pseudo Cushing^s syndrome [Recovering/Resolving]
